FAERS Safety Report 9408938 (Version 1)
Quarter: 2013Q3

REPORT INFORMATION
  Report Type: Spontaneous
  Country: US (occurrence: US)
  Receive Date: 20130719
  Receipt Date: 20130719
  Transmission Date: 20140515
  Serious: Yes (Hospitalization)
  Sender: FDA-Public Use
  Company Number: US-BRISTOL-MYERS SQUIBB COMPANY-18523845

PATIENT
  Age: 62 Year
  Sex: Female
  Weight: 113.38 kg

DRUGS (26)
  1. BYETTA [Suspect]
     Indication: TYPE 2 DIABETES MELLITUS
     Route: 058
     Dates: start: 2009
  2. BYETTA [Suspect]
     Indication: TYPE 2 DIABETES MELLITUS
     Route: 058
     Dates: end: 20110916
  3. BYETTA [Suspect]
     Indication: TYPE 2 DIABETES MELLITUS
     Route: 058
     Dates: start: 201112
  4. ONGLYZA TABS [Suspect]
     Indication: TYPE 2 DIABETES MELLITUS
     Route: 048
     Dates: start: 201201
  5. ZESTRIL [Suspect]
     Indication: HYPERTENSION
     Route: 048
     Dates: start: 2008
  6. SYMBICORT [Suspect]
     Indication: CHRONIC OBSTRUCTIVE PULMONARY DISEASE
     Route: 055
     Dates: start: 2008
  7. SYMBICORT [Suspect]
     Indication: ASTHMA
     Route: 055
     Dates: start: 2008
  8. OMEPRAZOLE [Suspect]
     Indication: GASTROOESOPHAGEAL REFLUX DISEASE
     Route: 048
     Dates: start: 2005
  9. HUMALOG [Concomitant]
     Indication: TYPE 2 DIABETES MELLITUS
     Route: 058
  10. LEVEMIR [Concomitant]
     Indication: TYPE 2 DIABETES MELLITUS
     Route: 058
  11. CARDIZEM [Concomitant]
     Indication: CARDIAC DISORDER
     Route: 048
  12. VITAMIN D [Concomitant]
  13. COLACE [Concomitant]
     Indication: HAEMORRHOIDS
     Route: 048
  14. FUROSEMIDE [Concomitant]
     Indication: POLYURIA
     Dosage: INCREASED TO 160MG FROM 2011
  15. COUMADIN [Concomitant]
  16. GABAPENTIN [Concomitant]
     Indication: DIABETIC NEUROPATHY
     Dosage: 600MG AND 900MG
  17. SPIRIVA [Concomitant]
     Indication: ASTHMA
     Route: 055
  18. HYDROCODONE [Concomitant]
     Indication: PAIN
     Route: 048
  19. ZOLPIDEM [Concomitant]
     Indication: SLEEP DISORDER
     Route: 048
  20. DILTIAZEM HCL [Concomitant]
     Indication: HYPERTENSION
     Route: 048
     Dates: start: 2008
  21. ATORVASTATIN [Concomitant]
     Indication: BLOOD CHOLESTEROL
     Route: 048
     Dates: start: 2003
  22. ASPIRIN [Concomitant]
     Indication: PROPHYLAXIS
     Route: 048
  23. IRON [Concomitant]
     Route: 048
     Dates: start: 2008
  24. VITAMIN C [Concomitant]
     Route: 048
  25. VITAMIN E [Concomitant]
     Route: 048
  26. MULTIVITAMIN [Concomitant]
     Route: 048

REACTIONS (18)
  - Knee arthroplasty [Recovering/Resolving]
  - Femur fracture [Recovering/Resolving]
  - Fall [Recovered/Resolved]
  - Thrombosis [Recovering/Resolving]
  - Sensory loss [Not Recovered/Not Resolved]
  - Weight decreased [Recovering/Resolving]
  - Limb deformity [Unknown]
  - Fluid retention [Unknown]
  - Diabetes mellitus inadequate control [Unknown]
  - Gait disturbance [Unknown]
  - Visual impairment [Unknown]
  - Vision blurred [Unknown]
  - Scratch [Unknown]
  - Sinus congestion [Unknown]
  - Muscle spasms [Unknown]
  - Hypoaesthesia [Unknown]
  - Sleep apnoea syndrome [Unknown]
  - Joint injury [None]
